FAERS Safety Report 9257713 (Version 3)
Quarter: 2013Q4

REPORT INFORMATION
  Report Type: Spontaneous
  Country: US (occurrence: US)
  Receive Date: 20130426
  Receipt Date: 20131008
  Transmission Date: 20140711
  Serious: Yes (Hospitalization, Disabling, Other)
  Sender: FDA-Public Use
  Company Number: US-ASTRAZENECA-2013SE27483

PATIENT
  Age: 59 Year
  Sex: Female

DRUGS (25)
  1. NEXIUM [Suspect]
     Indication: GASTROOESOPHAGEAL REFLUX DISEASE
     Route: 048
     Dates: start: 20050324, end: 2013
  2. PRILOSEC OTC [Suspect]
     Route: 048
  3. PREVACID [Concomitant]
  4. ZANTAC [Concomitant]
  5. TUMS [Concomitant]
  6. ROLAIDS [Concomitant]
  7. MYLANTA [Concomitant]
  8. VIT D [Concomitant]
     Dosage: 1.25 MG /50000 UNIT 1 WEEKLY
  9. LOVAZA [Concomitant]
  10. OXYCODON APAP [Concomitant]
     Dosage: 5-500MG
     Dates: start: 20080819
  11. PROPOXYPHEN APAP [Concomitant]
     Dosage: 100-650
     Dates: start: 20090804
  12. PROMETHAZINE [Concomitant]
     Dates: start: 20010219
  13. NAPROXEN [Concomitant]
     Dates: start: 20011103
  14. TRAZODONE [Concomitant]
     Dates: start: 20021003
  15. MOEXIPRIL HCL [Concomitant]
     Dates: start: 20030812
  16. BENZTROPINE MES [Concomitant]
     Dates: start: 20040624
  17. ZYPREXA [Concomitant]
     Dates: start: 20041123
  18. HYDROCHLOROTHIAZIDE [Concomitant]
     Dates: start: 20050302
  19. ZYRTEC [Concomitant]
     Dates: start: 20050406
  20. ZOLOFT [Concomitant]
     Dates: start: 20060223
  21. LOTREL [Concomitant]
     Dosage: 5/10MG 1 CAP ONCE DAILY
     Dates: start: 20050615
  22. SINGULAIR [Concomitant]
     Dates: start: 20070309
  23. FEMARA [Concomitant]
     Dates: start: 20090211
  24. ATORVASTATIN [Concomitant]
     Dates: start: 20120126
  25. LORTAB [Concomitant]
     Dosage: 5-500MG 1-2 TAB EVERY SIX HOURS

REACTIONS (20)
  - Depression [Unknown]
  - Chest pain [Unknown]
  - Pain in extremity [Unknown]
  - Back pain [Unknown]
  - Post-traumatic stress disorder [Unknown]
  - Bipolar disorder [Unknown]
  - Breast cancer female [Unknown]
  - Arthralgia [Unknown]
  - Osteoporosis [Unknown]
  - Bone density decreased [Unknown]
  - Multiple fractures [Unknown]
  - Hand fracture [Unknown]
  - Foot fracture [Unknown]
  - Arthritis [Unknown]
  - Rheumatoid arthritis [Unknown]
  - Diabetes mellitus [Unknown]
  - Vitamin D deficiency [Unknown]
  - Cervical spinal stenosis [Unknown]
  - Polyarthritis [Unknown]
  - Osteoarthritis [Unknown]
